FAERS Safety Report 4703080-9 (Version None)
Quarter: 2005Q2

REPORT INFORMATION
  Report Type: 
  Country: None (occurrence: None)
  Receive Date: 20050629
  Receipt Date: 20050603
  Transmission Date: 20051028
  Serious: Yes (Hospitalization)
  Sender: FDA-Public Use
  Company Number: FR-BRISTOL-MYERS SQUIBB COMPANY-12993622

PATIENT
  Age: 71 Year
  Sex: Male

DRUGS (7)
  1. ELISOR TABS [Suspect]
     Route: 048
     Dates: end: 20050328
  2. PLAVIX [Suspect]
     Route: 048
     Dates: end: 20050415
  3. TORENTAL [Suspect]
     Dates: end: 20050329
  4. COVERSYL [Suspect]
     Dates: end: 20050329
  5. CORDARONE [Suspect]
     Dates: start: 20010315, end: 20050329
  6. KARDEGIC [Suspect]
     Dates: end: 20050329
  7. JOSIR [Concomitant]
     Dates: end: 20050409

REACTIONS (1)
  - INTERSTITIAL LUNG DISEASE [None]
